FAERS Safety Report 14498070 (Version 1)
Quarter: 2018Q1

REPORT INFORMATION
  Report Type: Spontaneous
  Country: US (occurrence: US)
  Receive Date: 20180207
  Receipt Date: 20180207
  Transmission Date: 20180509
  Serious: Yes (Hospitalization)
  Sender: FDA-Public Use
  Company Number: US-JNJFOC-20171211859

PATIENT
  Age: 60 Year
  Sex: Male

DRUGS (3)
  1. METFORMIN [Suspect]
     Active Substance: METFORMIN HYDROCHLORIDE
     Indication: PRODUCT USED FOR UNKNOWN INDICATION
     Route: 065
     Dates: end: 201508
  2. LANTUS [Suspect]
     Active Substance: INSULIN GLARGINE
     Indication: PRODUCT USED FOR UNKNOWN INDICATION
     Route: 058
  3. INVOKANA [Suspect]
     Active Substance: CANAGLIFLOZIN
     Indication: PRODUCT USED FOR UNKNOWN INDICATION
     Route: 048

REACTIONS (7)
  - Acute kidney injury [Recovering/Resolving]
  - Dry gangrene [Recovering/Resolving]
  - Diabetic ketosis [Recovering/Resolving]
  - Toe amputation [Recovering/Resolving]
  - Osteomyelitis [Recovering/Resolving]
  - Diabetic foot [Recovering/Resolving]
  - Staphylococcal bacteraemia [Recovering/Resolving]

NARRATIVE: CASE EVENT DATE: 201508
